FAERS Safety Report 8014890-7 (Version None)
Quarter: 2011Q4

REPORT INFORMATION
  Report Type: 
  Country: None (occurrence: None)
  Receive Date: 20111229
  Receipt Date: 20111222
  Transmission Date: 20120403
  Serious: Yes (Other)
  Sender: FDA-Public Use
  Company Number: AU-BAXTER-2011BH040509

PATIENT
  Age: 25 Year
  Sex: Female
  Weight: 76 kg

DRUGS (5)
  1. VINCRISTINE SULFATE [Suspect]
     Indication: SARCOMA
     Route: 042
     Dates: start: 20100701, end: 20110501
  2. IFOSFAMIDE [Suspect]
     Indication: CHEMOTHERAPY
     Route: 042
     Dates: start: 20100701, end: 20110501
  3. CYCLOPHOSPHAMIDE [Suspect]
     Indication: SARCOMA
     Route: 042
     Dates: start: 20100701, end: 20110501
  4. ETOPOSIDE [Suspect]
     Indication: SARCOMA
     Route: 042
     Dates: start: 20100701, end: 20110501
  5. DOXORUBICIN HCL [Suspect]
     Indication: SARCOMA
     Route: 042
     Dates: start: 20100701, end: 20110501

REACTIONS (1)
  - DISEASE PROGRESSION [None]
